FAERS Safety Report 6848909-3 (Version None)
Quarter: 2010Q3

REPORT INFORMATION
  Report Type: 
  Country: None (occurrence: None)
  Receive Date: 20100716
  Receipt Date: 20071109
  Transmission Date: 20110219
  Serious: No
  Sender: FDA-Public Use
  Company Number: US-PFIZER INC-2007076336

PATIENT
  Age: 55 Year
  Sex: Female

DRUGS (11)
  1. CHANTIX [Suspect]
     Indication: SMOKING CESSATION THERAPY
     Dates: start: 20070101
  2. LITHIUM [Concomitant]
  3. TRAZODONE HYDROCHLORIDE [Concomitant]
  4. PROZAC [Concomitant]
  5. LEVOXYL [Concomitant]
  6. MONTELUKAST SODIUM [Concomitant]
  7. LIPITOR [Concomitant]
  8. ACTOS [Concomitant]
  9. SPIRIVA [Concomitant]
  10. ADVAIR DISKUS 100/50 [Concomitant]
  11. ALBUTEROL [Concomitant]

REACTIONS (3)
  - ANXIETY [None]
  - DRUG INTOLERANCE [None]
  - INSOMNIA [None]
